FAERS Safety Report 14343869 (Version 2)
Quarter: 2018Q1

REPORT INFORMATION
  Report Type: Spontaneous
  Country: ES (occurrence: ES)
  Receive Date: 20180102
  Receipt Date: 20180119
  Transmission Date: 20180509
  Serious: Yes (Other)
  Sender: FDA-Public Use
  Company Number: ES-GEHC-2017CSU004221

PATIENT

DRUGS (1)
  1. OMNIPAQUE [Suspect]
     Active Substance: IOHEXOL
     Indication: RENAL CANCER
     Dosage: 120 ML, SINGLE
     Route: 042
     Dates: start: 20171222, end: 20171222

REACTIONS (3)
  - Hypotension [Recovered/Resolved]
  - Arteriospasm coronary [Recovered/Resolved]
  - Bronchospasm [Recovered/Resolved]

NARRATIVE: CASE EVENT DATE: 20171222
